FAERS Safety Report 5068395-6 (Version None)
Quarter: 2006Q3

REPORT INFORMATION
  Report Type: 
  Country: None (occurrence: None)
  Receive Date: 20060802
  Receipt Date: 20050907
  Transmission Date: 20061208
  Serious: Yes (Hospitalization)
  Sender: FDA-Public Use
  Company Number: US-BRISTOL-MYERS SQUIBB COMPANY-13104203

PATIENT
  Sex: Female

DRUGS (3)
  1. COUMADIN [Suspect]
     Dosage: CURRENTLY ON HOLD
  2. PLAVIX [Concomitant]
  3. LISINOPRIL [Concomitant]
     Dosage: ON HOLD AS OF 28-JUN-2005.

REACTIONS (1)
  - GASTROINTESTINAL HAEMORRHAGE [None]
